FAERS Safety Report 7434953-4 (Version None)
Quarter: 2011Q2

REPORT INFORMATION
  Report Type: 
  Country: None (occurrence: None)
  Receive Date: 20110425
  Receipt Date: 20110418
  Transmission Date: 20111010
  Serious: Yes (Hospitalization)
  Sender: FDA-Public Use
  Company Number: NL-ABBOTT-11P-114-0702452-00

PATIENT
  Sex: Female
  Weight: 76 kg

DRUGS (6)
  1. HUMIRA [Suspect]
     Indication: PSORIATIC ARTHROPATHY
     Route: 058
     Dates: start: 20110104
  2. ARCOXIA [Concomitant]
     Indication: PRODUCT USED FOR UNKNOWN INDICATION
     Dates: start: 20110101
  3. EFFEXOR XR [Concomitant]
     Indication: DEPRESSION
     Route: 048
     Dates: start: 20080101
  4. HUMIRA [Suspect]
     Indication: RHEUMATOID ARTHRITIS
  5. ENBREL [Suspect]
     Indication: PSORIATIC ARTHROPATHY
     Route: 058
     Dates: start: 20100301, end: 20101201
  6. OMEPRAZOLE [Concomitant]
     Indication: GASTRIC DISORDER
     Route: 048
     Dates: start: 20100101

REACTIONS (12)
  - HYPOTENSION [None]
  - PARAESTHESIA [None]
  - PRURITUS GENERALISED [None]
  - URTICARIA [None]
  - OEDEMA [None]
  - PALLOR [None]
  - MALAISE [None]
  - PERIPHERAL COLDNESS [None]
  - DRUG INEFFECTIVE [None]
  - STRESS [None]
  - PRESYNCOPE [None]
  - RHEUMATOID ARTHRITIS [None]
